FAERS Safety Report 8509971-5 (Version None)
Quarter: 2012Q3

REPORT INFORMATION
  Report Type: 
  Country: None (occurrence: None)
  Receive Date: 20120713
  Receipt Date: 20120702
  Transmission Date: 20120928
  Serious: No
  Sender: FDA-Public Use
  Company Number: US-ASTRAZENECA-2012SE39001

PATIENT
  Age: 53 Year
  Sex: Female

DRUGS (3)
  1. ALEVE [Concomitant]
  2. NEXIUM [Suspect]
     Route: 048
  3. NEURONTIN [Concomitant]

REACTIONS (6)
  - MALAISE [None]
  - ULCER [None]
  - DYSPEPSIA [None]
  - ABDOMINAL DISCOMFORT [None]
  - NAUSEA [None]
  - DRUG DOSE OMISSION [None]
